FAERS Safety Report 15923935 (Version 2)
Quarter: 2025Q3

REPORT INFORMATION
  Report Type: Spontaneous
  Country: EU (occurrence: EU)
  Receive Date: 20190206
  Receipt Date: 20250909
  Transmission Date: 20251020
  Serious: Yes (Hospitalization, Other)
  Sender: AUROBINDO
  Company Number: EU-AUROBINDO-AUR-APL-2019-005408

PATIENT
  Age: 37 Year
  Sex: Male

DRUGS (2)
  1. ALPRAZOLAM [Suspect]
     Active Substance: ALPRAZOLAM
     Indication: Product used for unknown indication
     Route: 065
  2. CANDESARTAN CILEXETIL\HYDROCHLOROTHIAZIDE [Suspect]
     Active Substance: CANDESARTAN CILEXETIL\HYDROCHLOROTHIAZIDE
     Indication: Blood pressure management
     Route: 065

REACTIONS (7)
  - Primary hyperaldosteronism [Unknown]
  - Metabolic alkalosis [Unknown]
  - Anxiety [Unknown]
  - Muscular weakness [Unknown]
  - Muscle spasms [Unknown]
  - Hypokalaemia [Recovered/Resolved]
  - Therapeutic response decreased [Unknown]
